FAERS Safety Report 13535190 (Version 2)
Quarter: 2017Q3

REPORT INFORMATION
  Report Type: Spontaneous
  Country: US (occurrence: US)
  Receive Date: 20170511
  Receipt Date: 20170810
  Transmission Date: 20171127
  Serious: No
  Sender: FDA-Public Use
  Company Number: US-VIFOR (INTERNATIONAL) INC.-VIT-2017-01700

PATIENT
  Sex: Male

DRUGS (19)
  1. ALLOPURINOL. [Concomitant]
     Active Substance: ALLOPURINOL
     Dates: start: 20161203
  2. ENVARSUS XR [Concomitant]
     Active Substance: TACROLIMUS
  3. LEVOFLOXACIN. [Concomitant]
     Active Substance: LEVOFLOXACIN
  4. INSULIN [Concomitant]
     Active Substance: INSULIN NOS
     Dates: start: 20160520
  5. FUROSEMIDE. [Concomitant]
     Active Substance: FUROSEMIDE
     Dates: start: 20160924
  6. AMLODIPINE [Concomitant]
     Active Substance: AMLODIPINE BESYLATE
     Dates: start: 20160520
  7. SPIRONOLACTONE. [Concomitant]
     Active Substance: SPIRONOLACTONE
  8. PREDNISONE. [Concomitant]
     Active Substance: PREDNISONE
     Dates: start: 20160831
  9. TACROLIMUS. [Concomitant]
     Active Substance: TACROLIMUS
     Dates: start: 20161024
  10. VELTASSA [Suspect]
     Active Substance: PATIROMER
     Indication: HYPERKALAEMIA
     Route: 048
     Dates: start: 20170315
  11. HYDRALAZINE [Concomitant]
     Active Substance: HYDRALAZINE HYDROCHLORIDE
     Dates: start: 20170102
  12. CARVEDILOL. [Concomitant]
     Active Substance: CARVEDILOL
     Dates: start: 20160624
  13. MYCOPHENOLAT [Concomitant]
     Active Substance: MYCOPHENOLATE MOFETIL
     Dates: start: 20160624
  14. HYDROCODONE/ACETAMINOPHEN [Concomitant]
     Active Substance: ACETAMINOPHEN\HYDROCODONE
  15. CYANOCOBALAMIN. [Concomitant]
     Active Substance: CYANOCOBALAMIN
  16. NOVOLIN R [Concomitant]
     Active Substance: INSULIN HUMAN
     Dates: start: 20161205
  17. ATORVASTATIN [Concomitant]
     Active Substance: ATORVASTATIN
     Dates: start: 20160921
  18. MAGNESIUM OXIDE. [Concomitant]
     Active Substance: MAGNESIUM OXIDE
  19. COLECALCIFEROL [Concomitant]
     Active Substance: CHOLECALCIFEROL

REACTIONS (3)
  - Gynaecomastia [Unknown]
  - Diarrhoea [Unknown]
  - Gout [Unknown]

NARRATIVE: CASE EVENT DATE: 2017
